FAERS Safety Report 4682193-4 (Version None)
Quarter: 2005Q2

REPORT INFORMATION
  Report Type: 
  Country: None (occurrence: None)
  Receive Date: 20050606
  Receipt Date: 20050526
  Transmission Date: 20051028
  Serious: Yes (Hospitalization)
  Sender: FDA-Public Use
  Company Number: PHHO2005AR08567

PATIENT
  Sex: Female

DRUGS (1)
  1. ZELMAC / HTF 919A [Suspect]
     Dosage: 6 MG, QD
     Route: 048
     Dates: start: 20050301

REACTIONS (5)
  - ABDOMINAL PAIN UPPER [None]
  - ATRIOVENTRICULAR BLOCK [None]
  - CHEST PAIN [None]
  - GASTRITIS [None]
  - LUNG INFECTION [None]
